FAERS Safety Report 9260088 (Version 2)
Quarter: 2013Q2

REPORT INFORMATION
  Report Type: Report from Study
  Country: IN (occurrence: IN)
  Receive Date: 20130429
  Receipt Date: 20130529
  Transmission Date: 20140414
  Serious: Yes (Hospitalization)
  Sender: FDA-Public Use
  Company Number: IN-ROCHE-1219365

PATIENT
  Age: 72 Year
  Sex: Male

DRUGS (2)
  1. LUCENTIS [Suspect]
     Indication: AGE-RELATED MACULAR DEGENERATION
     Dosage: 5 MG/100 ML
     Route: 050
     Dates: start: 201211
  2. LUCENTIS [Suspect]
     Route: 050
     Dates: start: 20130213, end: 20130213

REACTIONS (4)
  - Dyspnoea [Recovered/Resolved]
  - Blood pressure increased [Unknown]
  - Local swelling [Unknown]
  - Asthma [Unknown]
